FAERS Safety Report 16123807 (Version 1)
Quarter: 2019Q1

REPORT INFORMATION
  Report Type: Spontaneous
  Country: US (occurrence: US)
  Receive Date: 20190327
  Receipt Date: 20190327
  Transmission Date: 20190418
  Serious: No
  Sender: FDA-Public Use
  Company Number: US-SUNOVION-2019SUN001236

PATIENT
  Age: 73 Year
  Weight: 56.24 kg

DRUGS (11)
  1. ALBUTEROL HFA [Concomitant]
     Active Substance: ALBUTEROL SULFATE
     Dosage: IPRATROPIUM - ALBUTEROL (O.5-2.5 (3) MG/3ML, NEBULE INH EVERY SIX HOURS AS NEEDED
     Route: 055
     Dates: start: 20180828
  2. PREDNISOLONE ACETATE. [Concomitant]
     Active Substance: PREDNISOLONE ACETATE
     Dosage: 10 MG, QD
     Route: 048
  3. SIMVASTATIN ALMUS [Concomitant]
     Dosage: 20 MG, QD
     Route: 048
  4. LOSARTAN ACTAVIS [Concomitant]
     Active Substance: LOSARTAN
     Dosage: 100 MG, QD
     Route: 048
  5. LONHALA MAGNAIR [Suspect]
     Active Substance: GLYCOPYRROLATE
     Dosage: UNK
     Route: 055
  6. IPRATROPIUM BR [Concomitant]
     Dosage: IPRATROPIUM - ALBUTEROL (O.5-2.5 (3) MG/3ML, NEBULE INH EVERY SIX HOURS AS NEEDED
     Route: 055
     Dates: start: 20180828
  7. ZOCOR [Concomitant]
     Active Substance: SIMVASTATIN
     Dosage: 20 MG, QD
     Route: 048
  8. BUDESONIDE ALMUS [Concomitant]
     Dosage: 0.5 MG/2 ML, ONE NEBULE BID
     Route: 055
     Dates: start: 20181009
  9. POTASSIUM CHLORIDE. [Concomitant]
     Active Substance: POTASSIUM CHLORIDE
     Dosage: 10 MEQ TABLET ER, QD
     Route: 048
  10. PERFOROMIST [Concomitant]
     Active Substance: FORMOTEROL FUMARATE DIHYDRATE
     Dosage: 20 MCG/2 ML, ON NEBULE INH BID
     Route: 055
     Dates: start: 20190125
  11. AMLODIPINE [Concomitant]
     Active Substance: AMLODIPINE BESYLATE
     Dosage: 10 MG, QD
     Route: 048

REACTIONS (1)
  - Dyspnoea [Unknown]

NARRATIVE: CASE EVENT DATE: 20190321
